FAERS Safety Report 9695380 (Version 1)
Quarter: 2013Q4

REPORT INFORMATION
  Report Type: Spontaneous
  Country: US (occurrence: US)
  Receive Date: 20131119
  Receipt Date: 20131119
  Transmission Date: 20140711
  Serious: Yes (Hospitalization)
  Sender: FDA-Public Use
  Company Number: US-ELI_LILLY_AND_COMPANY-US201311002487

PATIENT
  Age: 49 Year
  Sex: Female

DRUGS (4)
  1. CYMBALTA [Suspect]
     Indication: DEPRESSION
     Dosage: UNK
     Route: 065
     Dates: start: 2006
  2. CYMBALTA [Suspect]
     Dosage: 60 MG, QD
     Route: 065
  3. CYMBALTA [Suspect]
     Dosage: 60 MG, QD
     Route: 065
  4. QUETIAPINE FUMARATE [Concomitant]
     Indication: PRODUCT USED FOR UNKNOWN INDICATION
     Dosage: UNK UNK, QD
     Route: 065

REACTIONS (6)
  - Depression [Unknown]
  - Crying [Unknown]
  - Muscular weakness [Unknown]
  - Balance disorder [Unknown]
  - Dizziness [Unknown]
  - Drug withdrawal syndrome [Unknown]
